FAERS Safety Report 9711968 (Version 1)
Quarter: 2013Q4

REPORT INFORMATION
  Report Type: Spontaneous
  Country: US (occurrence: None)
  Receive Date: 20131125
  Receipt Date: 20131125
  Transmission Date: 20140711
  Serious: Yes (Disabling, Other)
  Sender: FDA-Public Use
  Company Number: None

PATIENT
  Age: 40 Year
  Sex: Male
  Weight: 53.52 kg

DRUGS (2)
  1. EXALGO ER 16MG [Suspect]
     Indication: CERVICAL VERTEBRAL FRACTURE
     Dosage: 3 X 16 MG DAILY, ONCE DAILY, TAKEN BY MOUTH
     Route: 048
     Dates: start: 20130814, end: 20131121
  2. EXALGO ER 16MG [Suspect]
     Indication: PAIN MANAGEMENT
     Dosage: 3 X 16 MG DAILY, ONCE DAILY, TAKEN BY MOUTH
     Route: 048
     Dates: start: 20130814, end: 20131121

REACTIONS (8)
  - Contusion [None]
  - Rash [None]
  - Eyelid infection [None]
  - Diarrhoea [None]
  - Medication residue present [None]
  - Withdrawal syndrome [None]
  - Convulsion [None]
  - Weight decreased [None]
